FAERS Safety Report 8866053 (Version 1)
Quarter: 2012Q4

REPORT INFORMATION
  Report Type: 
  Country: JP (occurrence: JP)
  Receive Date: 20121025
  Receipt Date: 20121025
  Transmission Date: 20130627
  Serious: Yes (Hospitalization, Other)
  Sender: FDA-Public Use
  Company Number: JP-TEVA-343035USA

PATIENT
  Age: 84 Year
  Sex: Male
  Weight: 51 kg

DRUGS (9)
  1. TREANDA [Suspect]
     Indication: MANTLE CELL LYMPHOMA
     Dosage: 90 mg/m2 Daily;
     Route: 042
     Dates: start: 20110811, end: 20110812
  2. AMLODIPINE BESILATE [Concomitant]
     Dosage: 5 Milligram Daily;
     Dates: end: 20120412
  3. CANDESARTAN CILEXETIL [Concomitant]
     Dosage: 8 Milligram Daily;
     Dates: end: 20120412
  4. EPINASTINE HYDROCHLORIDE [Concomitant]
     Dosage: 20 Milligram Daily;
     Dates: end: 20120412
  5. BACTRIM [Concomitant]
     Dosage: 5 Milligram Daily;
     Dates: end: 20120412
  6. FLUCONAZOLE [Concomitant]
     Dosage: 200 Milligram Daily;
     Dates: end: 20120412
  7. IRSOGLADINE MALEATE [Concomitant]
     Dosage: 2 Milligram Daily;
     Dates: end: 20120412
  8. ACICLOVIR [Concomitant]
     Dosage: 200 Milligram Daily;
     Dates: end: 20120412
  9. RITUXIMAB [Concomitant]
     Indication: MANTLE CELL LYMPHOMA
     Dates: start: 20110811, end: 20120111

REACTIONS (2)
  - Pneumonia cytomegaloviral [Recovered/Resolved]
  - Pancytopenia [Recovering/Resolving]
